FAERS Safety Report 12431684 (Version 1)
Quarter: 2016Q2

REPORT INFORMATION
  Report Type: Spontaneous
  Country: FR (occurrence: FR)
  Receive Date: 20160603
  Receipt Date: 20160603
  Transmission Date: 20160815
  Serious: Yes (Life-Threatening)
  Sender: FDA-Public Use
  Company Number: FR-AUROBINDO-AUR-APL-2016-06519

PATIENT
  Age: 77 Year
  Sex: Female

DRUGS (9)
  1. ALLOPURINOL ARROW TABLETS [Suspect]
     Active Substance: ALLOPURINOL
     Indication: PRODUCT USED FOR UNKNOWN INDICATION
     Dosage: 100 MG, ONCE A DAY
     Route: 048
  2. RIFADINE                           /00146901/ [Suspect]
     Active Substance: RIFAMPIN
     Indication: MEDICAL DEVICE SITE JOINT INFECTION
     Dosage: 600 MG, TWO TIMES A DAY
     Route: 042
     Dates: start: 20160408, end: 20160418
  3. NEBIVOLOL ARROW [Suspect]
     Active Substance: NEBIVOLOL HYDROCHLORIDE
     Indication: HYPERTENSION
     Dosage: 2.5 MG, ONCE A DAY
     Route: 048
     Dates: end: 20160418
  4. CUBICIN [Suspect]
     Active Substance: DAPTOMYCIN
     Indication: STAPHYLOCOCCAL INFECTION
     Dosage: UNK
     Route: 042
     Dates: start: 20160329, end: 20160418
  5. AZACTAM [Suspect]
     Active Substance: AZTREONAM
     Indication: MEDICAL DEVICE SITE JOINT INFECTION
     Dosage: 500 MG, 3 TIMES A DAY
     Route: 042
     Dates: start: 20160411, end: 20160418
  6. ESCITALOPRAM [Suspect]
     Active Substance: ESCITALOPRAM OXALATE
     Indication: DEPRESSION
     Dosage: 10 MG, ONCE A DAY
     Route: 048
     Dates: end: 20160418
  7. METRONIDAZOLE B BRAUN [Suspect]
     Active Substance: METRONIDAZOLE
     Indication: PRODUCT USED FOR UNKNOWN INDICATION
     Dosage: 500 MG, 3 TIMES A DAY
     Route: 042
     Dates: start: 20160411, end: 20160418
  8. PRAVASTATIN [Suspect]
     Active Substance: PRAVASTATIN\PRAVASTATIN SODIUM
     Indication: DYSLIPIDAEMIA
     Dosage: 20 MG, ONCE A DAY
     Route: 048
     Dates: start: 20160326, end: 20160418
  9. IRBESARTAN AND HYDROCHLOROTHIAZIDE [Suspect]
     Active Substance: HYDROCHLOROTHIAZIDE\IRBESARTAN
     Indication: HYPERTENSION
     Dosage: UNK, ONCE A DAY
     Route: 048
     Dates: end: 20160418

REACTIONS (1)
  - Interstitial lung disease [Recovering/Resolving]

NARRATIVE: CASE EVENT DATE: 201604
